FAERS Safety Report 6805427-6 (Version None)
Quarter: 2010Q2

REPORT INFORMATION
  Report Type: 
  Country: None (occurrence: None)
  Receive Date: 20100628
  Receipt Date: 20071109
  Transmission Date: 20101027
  Serious: No
  Sender: FDA-Public Use
  Company Number: US-PFIZER INC-2007096327

PATIENT
  Sex: Female

DRUGS (2)
  1. XALATAN [Suspect]
  2. XAL-EASE [Suspect]

REACTIONS (4)
  - DRUG INEFFECTIVE [None]
  - ERYTHEMA [None]
  - EYELID DISORDER [None]
  - INCORRECT DOSE ADMINISTERED [None]
